FAERS Safety Report 7493542-6 (Version None)
Quarter: 2011Q2

REPORT INFORMATION
  Report Type: 
  Country: None (occurrence: None)
  Receive Date: 20110520
  Receipt Date: 20110516
  Transmission Date: 20111010
  Serious: Yes (Hospitalization)
  Sender: FDA-Public Use
  Company Number: CHNY2011JP00447

PATIENT
  Age: 36 Year
  Sex: Female
  Weight: 46 kg

DRUGS (2)
  1. PURSENNID [Suspect]
     Indication: WEIGHT DECREASED
     Dosage: 120 MG, QD
     Route: 048
  2. BISACODYL [Suspect]
     Route: 065

REACTIONS (7)
  - ABDOMINAL PAIN [None]
  - POSTRENAL FAILURE [None]
  - HAEMATURIA [None]
  - OFF LABEL USE [None]
  - CALCULUS URETERIC [None]
  - HYDRONEPHROSIS [None]
  - FLANK PAIN [None]
